FAERS Safety Report 5398430-7 (Version None)
Quarter: 2007Q3

REPORT INFORMATION
  Report Type: 
  Country: None (occurrence: None)
  Receive Date: 20070724
  Receipt Date: 20070712
  Transmission Date: 20080115
  Serious: Yes (Hospitalization)
  Sender: FDA-Public Use
  Company Number: 2007-02193

PATIENT
  Age: 78 Year
  Sex: Female
  Weight: 54 kg

DRUGS (3)
  1. VELCADE [Suspect]
     Indication: MULTIPLE MYELOMA
     Dosage: 2.00 MG, INTRAVENOUS
     Route: 042
     Dates: start: 20070612, end: 20070622
  2. MELPHALAN [Suspect]
     Indication: MULTIPLE MYELOMA
     Dosage: 15.00 MG, ORAL
     Route: 048
     Dates: start: 20070612, end: 20070615
  3. PREDNISONE TAB [Suspect]
     Indication: MULTIPLE MYELOMA
     Dosage: 100.00 MG, ORAL
     Route: 048
     Dates: start: 20070612, end: 20070615

REACTIONS (5)
  - DEPRESSION [None]
  - GAIT DISTURBANCE [None]
  - NEUROPATHY [None]
  - PAIN [None]
  - SPONDYLOLISTHESIS [None]
